FAERS Safety Report 4307655-0 (Version None)
Quarter: 2004Q1

REPORT INFORMATION
  Report Type: 
  Country: None (occurrence: None)
  Receive Date: 20040225
  Receipt Date: 20030917
  Transmission Date: 20041129
  Serious: Yes (Disabling)
  Sender: FDA-Public Use
  Company Number: WAES 0309USA01900

PATIENT
  Age: 64 Year
  Sex: Male

DRUGS (6)
  1. ZOCOR [Suspect]
     Indication: BLOOD CHOLESTEROL INCREASED
     Dosage: 80 MG/DAILY/PO
     Route: 048
     Dates: start: 20030824, end: 20030827
  2. LOTREL [Concomitant]
  3. PROTONIX [Concomitant]
  4. VIOXX [Concomitant]
  5. ASPIRIN [Concomitant]
  6. ATENOLOL [Concomitant]

REACTIONS (3)
  - ARTHRALGIA [None]
  - ASTHENIA [None]
  - MYALGIA [None]
